FAERS Safety Report 7672168-5 (Version None)
Quarter: 2011Q3

REPORT INFORMATION
  Report Type: 
  Country: None (occurrence: None)
  Receive Date: 20110809
  Receipt Date: 20110727
  Transmission Date: 20111222
  Serious: Yes (Hospitalization, Other)
  Sender: FDA-Public Use
  Company Number: PHHY2010JP71016

PATIENT
  Sex: Male
  Weight: 82 kg

DRUGS (11)
  1. D-SORBITOL [Concomitant]
     Dosage: 5 G, UNK
     Route: 048
     Dates: start: 20100521, end: 20101004
  2. FRANDOL [Concomitant]
     Dosage: 40 MG, UNK
     Route: 048
     Dates: start: 20100909
  3. TORSEMIDE [Concomitant]
     Dosage: 2 MG, UNK
     Route: 048
     Dates: start: 20100918
  4. GABAPENTIN [Suspect]
     Indication: RADICULAR PAIN
     Dosage: 600 MG, QD
     Route: 048
     Dates: start: 20100827, end: 20100917
  5. TASIGNA [Suspect]
     Dosage: 400 MG, UNK
     Route: 048
  6. LASIX [Concomitant]
     Route: 048
  7. FENTANYL [Concomitant]
     Dosage: UNK
     Dates: start: 20100903
  8. MAGNESIUM OXIDE [Concomitant]
     Dosage: 3 G, UNK
     Route: 048
  9. TASIGNA [Suspect]
     Indication: CHRONIC MYELOID LEUKAEMIA
     Dosage: 800 MG, UNK
     Route: 048
     Dates: start: 20100402
  10. DIOVAN [Concomitant]
     Dosage: 80 MG, UNK
     Route: 048
     Dates: start: 20100918
  11. SLOW-K [Concomitant]
     Route: 048

REACTIONS (8)
  - CARDIAC FAILURE [None]
  - CARDIAC OUTPUT DECREASED [None]
  - RED BLOOD CELL COUNT DECREASED [None]
  - DILATATION VENTRICULAR [None]
  - ELECTROCARDIOGRAM QT PROLONGED [None]
  - HAEMATOCRIT DECREASED [None]
  - SUBILEUS [None]
  - HAEMOGLOBIN DECREASED [None]
